FAERS Safety Report 9918738 (Version 2)
Quarter: 2015Q4

REPORT INFORMATION
  Report Type: Report from Study
  Country: US (occurrence: US)
  Receive Date: 20140224
  Receipt Date: 20151104
  Transmission Date: 20160305
  Serious: Yes (Other)
  Sender: FDA-Public Use
  Company Number: US-ROCHE-1330834

PATIENT
  Age: 84 Year
  Sex: Female

DRUGS (13)
  1. LUCENTIS [Suspect]
     Active Substance: RANIBIZUMAB
     Indication: NEOVASCULAR AGE-RELATED MACULAR DEGENERATION
  2. ASPRIN-EC [Concomitant]
  3. BETADINE [Concomitant]
     Active Substance: POVIDONE-IODINE
  4. AVASTIN [Suspect]
     Active Substance: BEVACIZUMAB
     Indication: NEOVASCULAR AGE-RELATED MACULAR DEGENERATION
     Route: 065
     Dates: start: 20100427
  5. DIOVAN [Concomitant]
     Active Substance: VALSARTAN
  6. LUCENTIS [Suspect]
     Active Substance: RANIBIZUMAB
     Indication: NEOVASCULAR AGE-RELATED MACULAR DEGENERATION
     Dosage: BOTH EYES
     Route: 050
  7. VANCOMYCIN [Concomitant]
     Active Substance: VANCOMYCIN
     Route: 065
     Dates: start: 20121123, end: 20121123
  8. PROPARACAINE [Concomitant]
     Active Substance: PROPARACAINE
     Route: 065
  9. ISOSORBIDE MONONITRATE. [Concomitant]
     Active Substance: ISOSORBIDE MONONITRATE
     Route: 065
  10. EYLEA [Concomitant]
     Active Substance: AFLIBERCEPT
  11. SYNTHROID [Concomitant]
     Active Substance: LEVOTHYROXINE SODIUM
  12. TROPICAMIDE. [Concomitant]
     Active Substance: TROPICAMIDE
     Route: 065
  13. LIPITOR [Concomitant]
     Active Substance: ATORVASTATIN CALCIUM

REACTIONS (12)
  - Arthralgia [Unknown]
  - Choroidal neovascularisation [Unknown]
  - Myalgia [Unknown]
  - Macular degeneration [Unknown]
  - Retinal depigmentation [Unknown]
  - Off label use [Unknown]
  - Uveitis [Unknown]
  - Vitreous detachment [Unknown]
  - Retinal haemorrhage [Unknown]
  - Cough [Unknown]
  - Retinal disorder [Unknown]
  - Pupillary reflex impaired [Unknown]

NARRATIVE: CASE EVENT DATE: 20130102
